FAERS Safety Report 13324920 (Version 2)
Quarter: 2017Q3

REPORT INFORMATION
  Report Type: Spontaneous
  Country: US (occurrence: US)
  Receive Date: 20170308
  Receipt Date: 20170716
  Transmission Date: 20171127
  Serious: No
  Sender: FDA-Public Use
  Company Number: PHEH2015US027726

PATIENT
  Age: 38 Year
  Sex: Female

DRUGS (2)
  1. VOTRIENT [Suspect]
     Active Substance: PAZOPANIB HYDROCHLORIDE
     Indication: PSEUDOSARCOMA
     Dosage: 200 MG, QD
     Route: 048
     Dates: start: 20150430
  2. VOTRIENT [Suspect]
     Active Substance: PAZOPANIB HYDROCHLORIDE
     Indication: FIBROMATOSIS

REACTIONS (10)
  - Fatigue [Unknown]
  - Nausea [Unknown]
  - Frequent bowel movements [Unknown]
  - Hair colour changes [Unknown]
  - Hypertension [Unknown]
  - Vomiting [Unknown]
  - Skin discolouration [Unknown]
  - Paraesthesia [Unknown]
  - Product use in unapproved indication [Unknown]
  - Diarrhoea [Unknown]

NARRATIVE: CASE EVENT DATE: 20170228
